FAERS Safety Report 11070393 (Version 1)
Quarter: 2015Q2

REPORT INFORMATION
  Report Type: Report from Study
  Country: AU (occurrence: AU)
  Receive Date: 20150427
  Receipt Date: 20150427
  Transmission Date: 20150821
  Serious: Yes (Hospitalization, Other)
  Sender: FDA-Public Use
  Company Number: PHHY2014AU157659

PATIENT
  Sex: Female

DRUGS (2)
  1. CLOZARIL [Suspect]
     Active Substance: CLOZAPINE
     Indication: SCHIZOPHRENIA
     Dosage: 125 OT, UNK
     Route: 048
     Dates: start: 20140910, end: 20150210
  2. EPILIM [Concomitant]
     Active Substance: VALPROATE SODIUM
     Indication: PRODUCT USED FOR UNKNOWN INDICATION
     Route: 065

REACTIONS (10)
  - Myocardial ischaemia [Unknown]
  - Myocardial infarction [Unknown]
  - Ventricular extrasystoles [Unknown]
  - Unresponsive to stimuli [Recovered/Resolved with Sequelae]
  - Bradycardia [Recovered/Resolved with Sequelae]
  - Poor peripheral circulation [Recovered/Resolved with Sequelae]
  - Ventricular arrhythmia [Unknown]
  - Hypotension [Recovered/Resolved with Sequelae]
  - Hypotension [Not Recovered/Not Resolved]
  - Drug ineffective [Unknown]
